FAERS Safety Report 9411612 (Version 1)
Quarter: 2013Q3

REPORT INFORMATION
  Report Type: Spontaneous
  Country: US (occurrence: None)
  Receive Date: 20130718
  Receipt Date: 20130718
  Transmission Date: 20140515
  Serious: Yes (Hospitalization, Other)
  Sender: FDA-Public Use
  Company Number: None

PATIENT
  Age: 17 Year
  Sex: Female
  Weight: 54.25 kg

DRUGS (1)
  1. LAMICTAL XR [Suspect]
     Indication: CONVULSION
     Route: 048
     Dates: start: 20120319, end: 201307

REACTIONS (1)
  - Meningitis aseptic [None]
